FAERS Safety Report 5635549-7 (Version None)
Quarter: 2008Q1

REPORT INFORMATION
  Report Type: 
  Country: None (occurrence: None)
  Receive Date: 20080222
  Receipt Date: 20080218
  Transmission Date: 20080703
  Serious: Yes (Death, Hospitalization)
  Sender: FDA-Public Use
  Company Number: US-BAYER-200714760NA

PATIENT
  Age: 75 Year
  Sex: Male
  Weight: 59 kg

DRUGS (9)
  1. SORAFENIB [Suspect]
     Indication: MUCOEPIDERMOID CARCINOMA
     Dosage: TOTAL DAILY DOSE: 800 MG  UNIT DOSE: 200 MG
     Route: 048
     Dates: start: 20070731, end: 20071123
  2. RAPAMYCIN [Suspect]
     Indication: MUCOEPIDERMOID CARCINOMA
     Dosage: TOTAL DAILY DOSE: 3 MG
     Route: 048
     Dates: start: 20070717, end: 20071123
  3. TERAZOSIN HCL [Concomitant]
     Dates: start: 20071028
  4. ALBUTEROL [Concomitant]
     Indication: CHRONIC OBSTRUCTIVE PULMONARY DISEASE
     Route: 055
  5. METFORMIN HCL [Concomitant]
     Indication: DIABETES MELLITUS
  6. GLIPIZIDE [Concomitant]
     Indication: DIABETES MELLITUS
     Route: 048
  7. GEMFIBROZIL [Concomitant]
  8. DIOVAN [Concomitant]
  9. LOVASTATIN [Concomitant]

REACTIONS (2)
  - ARRHYTHMIA [None]
  - ATRIAL FIBRILLATION [None]
